FAERS Safety Report 21500649 (Version 1)
Quarter: 2022Q4

REPORT INFORMATION
  Report Type: Spontaneous
  Country: AT (occurrence: AT)
  Receive Date: 20221025
  Receipt Date: 20221025
  Transmission Date: 20230112
  Serious: Yes (Life-Threatening)
  Sender: FDA-Public Use
  Company Number: None

PATIENT
  Age: 68 Year
  Sex: Male
  Weight: 111 kg

DRUGS (1)
  1. FIBRYGA [Suspect]
     Active Substance: FIBRINOGEN HUMAN
     Indication: Product used for unknown indication
     Dosage: FOURTH ADMINISTRATION
     Route: 042
     Dates: start: 20220930, end: 20220930

REACTIONS (1)
  - Blood pressure decreased [Recovered/Resolved]

NARRATIVE: CASE EVENT DATE: 20220930
